FAERS Safety Report 8848909 (Version 1)
Quarter: 2012Q4

REPORT INFORMATION
  Report Type: Spontaneous
  Country: US (occurrence: None)
  Receive Date: 20121015
  Receipt Date: 20121015
  Transmission Date: 20130627
  Serious: Yes (Hospitalization, Other)
  Sender: FDA-Public Use
  Company Number: DKLU1079542

PATIENT
  Age: 8 Month
  Sex: Female
  Weight: 6.98 kg

DRUGS (5)
  1. SABRIL [Suspect]
     Indication: CONVULSION
     Route: 048
     Dates: start: 20120404
  2. TOPIRAMATE (TOPIRAMATE) [Concomitant]
  3. RANITIDINE (RANITIDINE) [Concomitant]
  4. SULFAMETHOXAZOL TRIMETHOPRIM (BACTRIM) [Concomitant]
  5. ACTHAR HP (CORTICOTROPIN) [Concomitant]

REACTIONS (4)
  - Visual acuity reduced [None]
  - Convulsion [None]
  - Neutropenia [None]
  - Motor developmental delay [None]
